FAERS Safety Report 9400385 (Version 2)
Quarter: 2013Q3

REPORT INFORMATION
  Report Type: Spontaneous
  Country: US (occurrence: US)
  Receive Date: 20130715
  Receipt Date: 20130920
  Transmission Date: 20140515
  Serious: Yes (Other)
  Sender: FDA-Public Use
  Company Number: US-BRISTOL-MYERS SQUIBB COMPANY-19095017

PATIENT
  Age: 67 Year
  Sex: Male
  Weight: 88.43 kg

DRUGS (13)
  1. BYDUREON [Suspect]
     Indication: TYPE 2 DIABETES MELLITUS
     Dates: start: 201305
  2. CARVEDILOL [Concomitant]
  3. METFORMIN [Concomitant]
  4. LISINOPRIL [Concomitant]
  5. CRESTOR [Concomitant]
  6. GLIMEPIRIDE [Concomitant]
     Dosage: 2MG,1/2 PER DAY
  7. ASPIRIN [Concomitant]
  8. OMEGA 3 FISH OIL [Concomitant]
  9. MULTIVITAMIN [Concomitant]
  10. KRILL OIL [Concomitant]
  11. COQ10 [Concomitant]
  12. TYLENOL [Concomitant]
  13. VIAGRA [Concomitant]

REACTIONS (3)
  - Colon cancer [Not Recovered/Not Resolved]
  - Prostate cancer [Unknown]
  - Dizziness [Unknown]
